FAERS Safety Report 10072399 (Version 3)
Quarter: 2014Q2

REPORT INFORMATION
  Report Type: Report from Study
  Country: US (occurrence: US)
  Receive Date: 20140411
  Receipt Date: 20140619
  Transmission Date: 20141212
  Serious: Yes (Other)
  Sender: FDA-Public Use
  Company Number: PHEH2014US006134

PATIENT
  Age: 29 Year
  Sex: Male

DRUGS (6)
  1. AFINITOR [Suspect]
     Indication: ANGIOMYOLIPOMA
     Dosage: 10 MG, DAILY
     Route: 048
     Dates: start: 20120817
  2. AFINITOR [Suspect]
     Route: 048
  3. DEPAKOTE [Concomitant]
  4. LAMICTAL [Concomitant]
  5. KEPPRA [Concomitant]
  6. ZONEGRAN [Concomitant]

REACTIONS (4)
  - Foot fracture [Unknown]
  - Convulsion [Unknown]
  - Fall [Unknown]
  - Peripheral swelling [Unknown]
